FAERS Safety Report 8387692-X (Version None)
Quarter: 2012Q2

REPORT INFORMATION
  Report Type: 
  Country: None (occurrence: None)
  Receive Date: 20120525
  Receipt Date: 20120518
  Transmission Date: 20120825
  Serious: Yes (Other)
  Sender: FDA-Public Use
  Company Number: US-ABBOTT-12P-163-0936996-00

PATIENT
  Age: 53 Year
  Sex: Female

DRUGS (2)
  1. OTHER MEDICATIONS [Concomitant]
     Indication: PRODUCT USED FOR UNKNOWN INDICATION
  2. HUMIRA [Suspect]
     Indication: PSORIASIS
     Dosage: LOADING DOSE
     Dates: start: 20120515, end: 20120515

REACTIONS (9)
  - HIDRADENITIS [None]
  - CYST RUPTURE [None]
  - LOCAL SWELLING [None]
  - PAIN [None]
  - GAIT DISTURBANCE [None]
  - TOOTHACHE [None]
  - ABDOMINAL PAIN [None]
  - FEELING HOT [None]
  - HAEMORRHAGE [None]
